FAERS Safety Report 9801634 (Version 2)
Quarter: 2014Q2

REPORT INFORMATION
  Report Type: Spontaneous
  Country: GB (occurrence: GB)
  Receive Date: 20140107
  Receipt Date: 20140508
  Transmission Date: 20141212
  Serious: Yes (Other)
  Sender: FDA-Public Use
  Company Number: GB-JNJFOC-20140101215

PATIENT
  Sex: Male
  Weight: 58 kg

DRUGS (3)
  1. REMICADE [Suspect]
     Indication: CROHN^S DISEASE
     Dosage: DAILY DOSE 2.4 GRAMS
     Route: 042
     Dates: start: 200912, end: 201306
  2. AZATHIOPRINE [Concomitant]
     Route: 065
     Dates: start: 2007
  3. AZATHIOPRINE [Concomitant]
     Route: 065

REACTIONS (1)
  - Lupus-like syndrome [Recovering/Resolving]
